FAERS Safety Report 9409014 (Version 6)
Quarter: 2014Q2

REPORT INFORMATION
  Report Type: Report from Study
  Country: US (occurrence: US)
  Receive Date: 20130719
  Receipt Date: 20140627
  Transmission Date: 20141212
  Serious: Yes (Hospitalization, Other)
  Sender: FDA-Public Use
  Company Number: US-BIOGENIDEC-2013BI064093

PATIENT
  Age: 47 Year
  Sex: Female

DRUGS (2)
  1. TYSABRI [Suspect]
     Indication: MULTIPLE SCLEROSIS
     Route: 042
     Dates: start: 20110210, end: 20120206
  2. TYSABRI [Suspect]
     Indication: MULTIPLE SCLEROSIS
     Route: 042
     Dates: start: 20130815

REACTIONS (7)
  - Breast cancer [Recovered/Resolved]
  - Thrombosis [Unknown]
  - Breast lump removal [Recovered/Resolved]
  - Mastectomy [Recovered/Resolved]
  - Post procedural infection [Recovered/Resolved]
  - Surgery [Recovered/Resolved]
  - Pain [Unknown]
